FAERS Safety Report 6772962-9 (Version None)
Quarter: 2010Q2

REPORT INFORMATION
  Report Type: 
  Country: None (occurrence: None)
  Receive Date: 20100616
  Receipt Date: 20100603
  Transmission Date: 20101027
  Serious: Yes (Other)
  Sender: FDA-Public Use
  Company Number: US-BAXTER-2010BH015961

PATIENT
  Age: 44 Year
  Sex: Female

DRUGS (5)
  1. GAMMAGARD S/D [Suspect]
     Indication: IMMUNODEFICIENCY COMMON VARIABLE
     Route: 042
     Dates: start: 20080101, end: 20080101
  2. GAMMAGARD S/D [Suspect]
     Route: 042
     Dates: start: 20080101, end: 20080101
  3. GAMUNEX [Suspect]
     Indication: IMMUNODEFICIENCY COMMON VARIABLE
     Route: 042
     Dates: start: 20080101, end: 20080101
  4. GAMUNEX [Suspect]
     Route: 042
     Dates: start: 20080101, end: 20080101
  5. PREDNISONE [Concomitant]
     Indication: IMMUNODEFICIENCY COMMON VARIABLE
     Route: 065
     Dates: start: 20080101

REACTIONS (1)
  - THERAPEUTIC RESPONSE DECREASED [None]
